FAERS Safety Report 6744226-0 (Version None)
Quarter: 2010Q2

REPORT INFORMATION
  Report Type: 
  Country: None (occurrence: None)
  Receive Date: 20100527
  Receipt Date: 20100520
  Transmission Date: 20101027
  Serious: Yes (Hospitalization)
  Sender: FDA-Public Use
  Company Number: IE-SANOFI-AVENTIS-2010SA017220

PATIENT
  Age: 37 Year
  Sex: Female

DRUGS (5)
  1. CLOMID [Suspect]
     Indication: INFERTILITY TESTS
     Route: 065
  2. ASPIRIN [Concomitant]
  3. SIMVASTATIN [Concomitant]
  4. PERINDOPRIL [Concomitant]
  5. PARACETAMOL [Concomitant]

REACTIONS (1)
  - CEREBROVASCULAR ACCIDENT [None]
